FAERS Safety Report 16220546 (Version 1)
Quarter: 2019Q2

REPORT INFORMATION
  Report Type: Spontaneous
  Country: US (occurrence: US)
  Receive Date: 20190421
  Receipt Date: 20190421
  Transmission Date: 20190711
  Serious: No
  Sender: FDA-Public Use
  Company Number: US-JNJFOC-20190408520

PATIENT
  Sex: Female
  Weight: 99.79 kg

DRUGS (1)
  1. NORGESTIMATE/ETHINYL ESTRADIOL [Suspect]
     Active Substance: ETHINYL ESTRADIOL\NORGESTIMATE
     Indication: MENSTRUATION IRREGULAR
     Route: 048

REACTIONS (2)
  - Adverse drug reaction [Unknown]
  - Metrorrhagia [Unknown]
